FAERS Safety Report 20376261 (Version 1)
Quarter: 2022Q1

REPORT INFORMATION
  Report Type: Spontaneous
  Country: US (occurrence: None)
  Receive Date: 20220125
  Receipt Date: 20220125
  Transmission Date: 20220423
  Serious: Yes (Life-Threatening, Hospitalization)
  Sender: FDA-Public Use
  Company Number: None

PATIENT
  Age: 70 Year
  Sex: Female

DRUGS (3)
  1. ATORVASTATIN [Suspect]
     Active Substance: ATORVASTATIN
     Indication: Hyperlipidaemia
     Dosage: FREQUENCY : DAILY;?
     Route: 048
  2. GEMFIBROZIL [Suspect]
     Active Substance: GEMFIBROZIL
     Indication: Hyperlipidaemia
     Dosage: FREQUENCY : TWICE A DAY;?
     Route: 048
  3. Quetiapine 150 mg QHS [Concomitant]
     Dates: start: 20210104, end: 20210111

REACTIONS (2)
  - Rhabdomyolysis [None]
  - Renal failure [None]

NARRATIVE: CASE EVENT DATE: 20210112
